FAERS Safety Report 10973947 (Version 2)
Quarter: 2015Q1

REPORT INFORMATION
  Report Type: Spontaneous
  Country: US (occurrence: None)
  Receive Date: 20150226
  Receipt Date: 20150226
  Transmission Date: 20150721
  Serious: No
  Sender: FDA-Public Use
  Company Number: TAP2009Q00425

PATIENT
  Age: 54 Year
  Sex: Male
  Weight: 106.5 kg

DRUGS (3)
  1. PROBENECID. [Concomitant]
     Active Substance: PROBENECID
  2. ULORIC [Suspect]
     Active Substance: FEBUXOSTAT
     Indication: GOUT
     Route: 048
     Dates: start: 20090319, end: 20090402
  3. COLCHICINE. [Concomitant]
     Active Substance: COLCHICINE

REACTIONS (1)
  - Dysuria [None]

NARRATIVE: CASE EVENT DATE: 200903
